FAERS Safety Report 4442312-1 (Version None)
Quarter: 2004Q2

REPORT INFORMATION
  Report Type: 
  Country: None (occurrence: None)
  Receive Date: 20040603
  Receipt Date: 20040329
  Transmission Date: 20050107
  Serious: Yes (Other)
  Sender: FDA-Public Use
  Company Number: 2004UW06079

PATIENT
  Age: 50 Year
  Sex: Female
  Weight: 90.7194 kg

DRUGS (4)
  1. CRESTOR [Suspect]
     Indication: BLOOD CHOLESTEROL INCREASED
     Dosage: 40 MG PO
     Route: 048
  2. PROTONIX [Concomitant]
  3. LIPITOR [Concomitant]
  4. NATURAL CHOLESTEROL PRODUCT [Concomitant]

REACTIONS (6)
  - CARDIAC FLUTTER [None]
  - CHEST PAIN [None]
  - CHILLS [None]
  - FEELING COLD [None]
  - INSOMNIA [None]
  - MYALGIA [None]
